FAERS Safety Report 16909715 (Version 6)
Quarter: 2024Q4

REPORT INFORMATION
  Report Type: Spontaneous
  Country: US (occurrence: US)
  Receive Date: 20191011
  Receipt Date: 20241113
  Transmission Date: 20250115
  Serious: Yes (Hospitalization, Other)
  Sender: PFIZER
  Company Number: US-MLMSERVICE-20191001-1979313-1

PATIENT
  Age: 51 Year
  Sex: Female

DRUGS (15)
  1. SULFAMETHOXAZOLE\TRIMETHOPRIM [Suspect]
     Active Substance: SULFAMETHOXAZOLE\TRIMETHOPRIM
     Indication: Antifungal prophylaxis
     Dosage: 1 DF, 1X/DAY (800/160 MG)
     Dates: start: 201512, end: 2016
  2. THYMOCYTE IMMUNE GLOBULIN NOS [Suspect]
     Active Substance: THYMOCYTE IMMUNE GLOBULIN NOS
     Indication: Immunosuppressant drug therapy
     Dosage: 3 DF, SINGLE, TOTAL, 3 DOSES OF 100 MG (1.5 MG/KG)
     Route: 042
     Dates: start: 201512
  3. TACROLIMUS [Suspect]
     Active Substance: TACROLIMUS
     Indication: Immunosuppressant drug therapy
     Dosage: TARGET TROUGH LEVEL OF 10-12 MG/DL
     Dates: start: 201512
  4. TACROLIMUS [Suspect]
     Active Substance: TACROLIMUS
     Dosage: 1 MG, 2X/DAY
  5. TACROLIMUS [Suspect]
     Active Substance: TACROLIMUS
     Dosage: UNK, TARGET THE GOAL TROUGH OF 8-10 MG/DL
     Dates: end: 2016
  6. TACROLIMUS [Suspect]
     Active Substance: TACROLIMUS
     Dosage: 13 MG, 2X/DAY
     Dates: start: 2016, end: 2016
  7. TACROLIMUS [Suspect]
     Active Substance: TACROLIMUS
     Dosage: 17 MG, 2X/DAY
     Dates: start: 2016, end: 2016
  8. TACROLIMUS [Suspect]
     Active Substance: TACROLIMUS
     Dosage: 17 MG, 2X/DAY, TAC TROUGH LEVEL WAS REDUCED TO 6-7 NG/DL
     Dates: start: 2016, end: 2016
  9. VALGANCICLOVIR [Suspect]
     Active Substance: VALGANCICLOVIR
     Indication: Antiviral prophylaxis
     Dosage: 450 MG, ALTERNATE DAY (EVERY 48 HOURS)
     Dates: start: 201512, end: 2016
  10. VALGANCICLOVIR [Suspect]
     Active Substance: VALGANCICLOVIR
     Dosage: 450 MG, DAILY (RESUMED AT WEEK 14 AFTER TRANSPLANT)
  11. MYCOPHENOLATE MOFETIL [Suspect]
     Active Substance: MYCOPHENOLATE MOFETIL
     Indication: Immunosuppressant drug therapy
     Dosage: 1 G, 2X/DAY
     Route: 048
     Dates: start: 201512, end: 2016
  12. MYCOPHENOLATE MOFETIL [Suspect]
     Active Substance: MYCOPHENOLATE MOFETIL
     Dosage: 500 MG, 2X/DAY
     Route: 048
     Dates: start: 2016, end: 2016
  13. PREDNISONE [Concomitant]
     Active Substance: PREDNISONE
     Indication: Immunosuppressant drug therapy
     Dosage: UNK, CONTINUED TO BE TAPERED
     Dates: start: 201512, end: 2016
  14. PREDNISONE [Concomitant]
     Active Substance: PREDNISONE
     Dosage: 5 MG, DAILY
     Dates: start: 2016, end: 2016
  15. PREDNISONE [Concomitant]
     Active Substance: PREDNISONE
     Dosage: 15 MG, DAILY (PREDNISONE WAS INCREASED TO 15 MG DAILY)

REACTIONS (4)
  - Myelosuppression [Unknown]
  - Myelosuppression [Unknown]
  - Neutropenia [Recovered/Resolved]
  - Hyperkalaemia [Unknown]

NARRATIVE: CASE EVENT DATE: 20160101
